FAERS Safety Report 13336036 (Version 2)
Quarter: 2017Q2

REPORT INFORMATION
  Report Type: Spontaneous
  Country: FR (occurrence: FR)
  Receive Date: 20170314
  Receipt Date: 20170418
  Transmission Date: 20170830
  Serious: Yes (Hospitalization, Disabling, Other)
  Sender: FDA-Public Use
  Company Number: FR-009507513-1703FRA005213

PATIENT
  Sex: Male
  Weight: 77 kg

DRUGS (1)
  1. LIPTRUZET [Suspect]
     Active Substance: ATORVASTATIN CALCIUM\EZETIMIBE
     Dosage: 1 TABLET (STRENGTH: 10/10 MG), QPM
     Route: 048
     Dates: start: 20161216, end: 20170107

REACTIONS (3)
  - Immune-mediated necrotising myopathy [Not Recovered/Not Resolved]
  - Autoimmune hepatitis [Not Recovered/Not Resolved]
  - Myositis [Not Recovered/Not Resolved]
